FAERS Safety Report 9272634 (Version 1)
Quarter: 2013Q2

REPORT INFORMATION
  Report Type: Spontaneous
  Country: US (occurrence: US)
  Receive Date: 20130506
  Receipt Date: 20130506
  Transmission Date: 20140414
  Serious: No
  Sender: FDA-Public Use
  Company Number: US-ASTRAZENECA-2013SE04043

PATIENT
  Sex: Female

DRUGS (5)
  1. PRILOSEC OTC [Suspect]
     Indication: FOOD POISONING
     Dosage: 1 TABLET, MORNING FOR 1 DAY
     Route: 048
     Dates: start: 20130109, end: 20130109
  2. MULTAQ [Concomitant]
     Indication: ATRIAL FIBRILLATION
  3. CALTRATE [Concomitant]
     Dosage: UNKNOWN
  4. BABY ASPIRIN [Concomitant]
  5. COUMADIN [Concomitant]
     Dosage: UNKNOWN

REACTIONS (3)
  - Labelled drug-drug interaction medication error [Unknown]
  - Dizziness [Recovered/Resolved]
  - Inappropriate schedule of drug administration [Unknown]
